FAERS Safety Report 18394191 (Version 1)
Quarter: 2020Q4

REPORT INFORMATION
  Report Type: Spontaneous
  Country: US (occurrence: US)
  Receive Date: 20201016
  Receipt Date: 20201016
  Transmission Date: 20210114
  Serious: Yes (Hospitalization)
  Sender: FDA-Public Use
  Company Number: US-CATALYST PHARMACEUTICALS, INC-2020CAT00525

PATIENT
  Sex: Female
  Weight: 48.07 kg

DRUGS (15)
  1. ZOFRAN [Concomitant]
     Active Substance: ONDANSETRON HYDROCHLORIDE
     Dosage: 8 MG, 3X/DAY
  2. FIRDAPSE [Suspect]
     Active Substance: AMIFAMPRIDINE PHOSPHATE
     Indication: MYASTHENIA GRAVIS
     Dosage: 10 MG, 3X/DAY
     Route: 048
     Dates: start: 202009
  3. DESIPRAMINE [Concomitant]
     Active Substance: DESIPRAMINE
     Dosage: 150 MG, 1X/DAY AT NIGHT
  4. NORETHINDRONE. [Concomitant]
     Active Substance: NORETHINDRONE
     Dosage: 5 MG, 1X/DAY AT NIGHT
  5. REGLAN [Concomitant]
     Active Substance: METOCLOPRAMIDE HYDROCHLORIDE
     Dosage: 5 MG, 3X/DAY
  6. PYRIDIUM [Concomitant]
     Active Substance: PHENAZOPYRIDINE
     Dosage: 200 MG, 3X/DAY AS NEEDED
  7. VITAMIN B12 [Concomitant]
     Active Substance: CYANOCOBALAMIN
     Dosage: 2X/MONTH EVERY 2 WEEKS
  8. MESTINON [Concomitant]
     Active Substance: PYRIDOSTIGMINE BROMIDE
     Dosage: 120 MG, 4X/DAY
  9. PROMETHAZINE [Concomitant]
     Active Substance: PROMETHAZINE HYDROCHLORIDE
     Dosage: 50 MG, 1X/DAY AS NEEDED
  10. METRONIDAZOLE. [Concomitant]
     Active Substance: METRONIDAZOLE
     Dosage: UNK, 1X/DAY
     Route: 061
  11. VITAMIN D3 [Concomitant]
     Active Substance: CHOLECALCIFEROL
     Dosage: ONCE EVERY 5 DAYS
  12. FERROUS GLUCONATE [Concomitant]
     Active Substance: FERROUS GLUCONATE
     Dosage: 240 MG, 2X/DAY
  13. ^NURIBEC^ [Concomitant]
     Dosage: 50 MG, 1X/DAY AT NIGHT
  14. TOPIRAMATE. [Concomitant]
     Active Substance: TOPIRAMATE
     Dosage: 200 MG, 1X/DAY AT NIGHT
  15. ATIVAN [Concomitant]
     Active Substance: LORAZEPAM
     Dosage: 1 MG, 3X/DAY

REACTIONS (6)
  - Blood potassium decreased [Unknown]
  - Product dose omission issue [Recovered/Resolved]
  - Blood magnesium decreased [Unknown]
  - Abdominal pain [Not Recovered/Not Resolved]
  - Off label use [Not Recovered/Not Resolved]
  - Vomiting [Not Recovered/Not Resolved]

NARRATIVE: CASE EVENT DATE: 2020
